FAERS Safety Report 7460482-8 (Version None)
Quarter: 2011Q2

REPORT INFORMATION
  Report Type: 
  Country: None (occurrence: None)
  Receive Date: 20110505
  Receipt Date: 20110503
  Transmission Date: 20111010
  Serious: No
  Sender: FDA-Public Use
  Company Number: US-PFIZER INC-2011095375

PATIENT
  Sex: Female
  Weight: 77 kg

DRUGS (6)
  1. NEXIUM [Concomitant]
     Indication: GASTROOESOPHAGEAL REFLUX DISEASE
     Dosage: UNK
     Route: 048
  2. LYRICA [Concomitant]
     Indication: PROCEDURAL PAIN
     Dosage: 450 MG, DAILY
     Route: 048
  3. MOBIC [Concomitant]
     Indication: PROCEDURAL PAIN
     Dosage: 15 MG, DAILY
     Route: 048
  4. EFFEXOR [Suspect]
     Indication: PAIN
     Dosage: 150 MG IN MORNING AND 75 MG AT NIGHT
     Route: 048
  5. EFFEXOR [Suspect]
     Indication: DEPRESSION
  6. WELLBUTRIN [Concomitant]
     Dosage: UNK
     Route: 048

REACTIONS (1)
  - URINE ANALYSIS ABNORMAL [None]
